FAERS Safety Report 25268493 (Version 1)
Quarter: 2025Q2

REPORT INFORMATION
  Report Type: Spontaneous
  Country: CN (occurrence: CN)
  Receive Date: 20250505
  Receipt Date: 20250505
  Transmission Date: 20250716
  Serious: Yes (Other)
  Sender: ACCORD
  Company Number: None

PATIENT
  Age: 65 Year
  Sex: Female
  Weight: 52 kg

DRUGS (4)
  1. TRASTUZUMAB [Suspect]
     Active Substance: TRASTUZUMAB
     Indication: Invasive breast carcinoma
     Dosage: 330 MILLIGRAM, QD, STRENGTH: 150 MG, IV DRIP
     Dates: start: 20250321, end: 20250321
  2. PACLITAXEL [Suspect]
     Active Substance: PACLITAXEL
     Indication: Invasive breast carcinoma
     Dosage: 180 MILLIGRAM, QD, IV DRIP, STERILE POWDER FOR INJECTION
     Dates: start: 20250321, end: 20250321
  3. PARAPLATIN [Suspect]
     Active Substance: CARBOPLATIN
     Indication: Invasive breast carcinoma
     Dosage: 550 MILLIGRAM, QD, IV DRIP
     Dates: start: 20250321, end: 20250321
  4. PERJETA [Suspect]
     Active Substance: PERTUZUMAB
     Indication: Invasive breast carcinoma
     Dosage: 420 MILLIGRAM, QD, IV DRIP
     Dates: start: 20250321, end: 20250321

REACTIONS (1)
  - Myelosuppression [Recovering/Resolving]

NARRATIVE: CASE EVENT DATE: 20250410
